FAERS Safety Report 10370410 (Version 1)
Quarter: 2014Q3

REPORT INFORMATION
  Report Type: Spontaneous
  Country: US (occurrence: None)
  Receive Date: 20140807
  Receipt Date: 20140807
  Transmission Date: 20150326
  Serious: Yes (Death, Hospitalization)
  Sender: FDA-Public Use
  Company Number: None

PATIENT
  Age: 70 Year
  Sex: Male
  Weight: 66.3 kg

DRUGS (4)
  1. PENTOSTATIN (DEXYCOFORMYCIN, DCF) [Suspect]
     Active Substance: PENTOSTATIN
  2. RITUXIMAB (MOAB C2B8 ANTI CD20, CHIMERIC) [Suspect]
     Active Substance: RITUXIMAB
  3. CAMPATH [Suspect]
     Active Substance: ALEMTUZUMAB
  4. CYCLOPHOSPHAMIDE. [Suspect]
     Active Substance: CYCLOPHOSPHAMIDE

REACTIONS (7)
  - Hypotension [None]
  - Depressed level of consciousness [None]
  - Neutrophil count abnormal [None]
  - Aspergillus infection [None]
  - Bradycardia [None]
  - Blood pressure fluctuation [None]
  - Fungal test positive [None]

NARRATIVE: CASE EVENT DATE: 20111126
